FAERS Safety Report 8306997-1 (Version None)
Quarter: 2012Q2

REPORT INFORMATION
  Report Type: 
  Country: None (occurrence: None)
  Receive Date: 20120424
  Receipt Date: 20120410
  Transmission Date: 20120825
  Serious: Yes (Hospitalization)
  Sender: FDA-Public Use
  Company Number: PHHY2012JP004895

PATIENT
  Sex: Female
  Weight: 44 kg

DRUGS (18)
  1. EXELON [Suspect]
     Dosage: 18 MG DAILY
     Route: 062
     Dates: start: 20120106, end: 20120119
  2. SOLITA-T1 INJECTION [Concomitant]
     Indication: DEHYDRATION
     Dosage: 1000 ML, UNK
     Dates: start: 20111205, end: 20111231
  3. UNASYN [Concomitant]
     Indication: PNEUMONIA
     Dosage: 1.5 G, UNK
     Dates: start: 20111118, end: 20120201
  4. CELECOXIB [Concomitant]
     Indication: CHONDROCALCINOSIS PYROPHOSPHATE
     Dosage: 200 MG,
     Route: 048
     Dates: start: 20111119, end: 20111128
  5. EXELON [Suspect]
     Dosage: 13.5MG (THREE 4.5MG PATCHES DAILY)
     Route: 062
     Dates: start: 20111223, end: 20120105
  6. RIZE [Concomitant]
     Indication: DEPRESSION
     Dosage: 5 MG,
     Route: 048
     Dates: start: 20111118, end: 20120120
  7. MEROPENEM [Concomitant]
     Indication: PNEUMONIA
     Dosage: 0.5 G, UNK
     Dates: start: 20120203, end: 20120213
  8. ONEALFA [Concomitant]
     Indication: OSTEOPOROSIS
     Dosage: 0.5 UG,
     Route: 048
     Dates: start: 20111118, end: 20120121
  9. SOLITA-T 3G [Concomitant]
     Indication: DEHYDRATION
     Dosage: 500 ML, UNK
     Dates: start: 20120219
  10. EXELON [Suspect]
     Dosage: 9 MG, DAILY
     Route: 062
     Dates: start: 20111130, end: 20111222
  11. NORVASC [Concomitant]
     Indication: HYPERTENSION
     Dosage: 2.5 MG,
     Route: 048
     Dates: start: 20111118, end: 20120209
  12. SOLDEM 3A [Concomitant]
     Indication: DEHYDRATION
     Dosage: 500 ML,
     Dates: start: 20111118, end: 20120128
  13. VANCOMYCIN [Concomitant]
     Indication: PNEUMONIA
     Dosage: 2 DF, UNK
     Dates: start: 20111122, end: 20111128
  14. EXELON [Suspect]
     Indication: DEMENTIA ALZHEIMER'S TYPE
     Dosage: 4.5 MG, DAILY
     Route: 062
     Dates: start: 20111125, end: 20111129
  15. ISOSORBIDE DINITRATE [Concomitant]
     Indication: ARRHYTHMIA
     Dosage: 40 MG
     Route: 048
     Dates: start: 20111118, end: 20120119
  16. RISEDRONATE SODIUM [Concomitant]
     Indication: OSTEOPOROSIS
     Dosage: 2.5 MG,
     Route: 048
     Dates: start: 20111118, end: 20120119
  17. TPN ELECTROLYTES IN PLASTIC CONTAINER [Concomitant]
     Indication: DEHYDRATION
     Dates: start: 20111118, end: 20120321
  18. ACETAMINOPHEN [Concomitant]
     Indication: PAIN
     Dosage: 400 MG, UNK
     Route: 048
     Dates: start: 20111128, end: 20120123

REACTIONS (19)
  - RENAL FAILURE ACUTE [None]
  - DYSPHAGIA [None]
  - HYPOPHAGIA [None]
  - HYPERSOMNIA [None]
  - HYPERCALCAEMIA [None]
  - APATHY [None]
  - MUSCULOSKELETAL DISCOMFORT [None]
  - LUNG DISORDER [None]
  - AGGRESSION [None]
  - DEHYDRATION [None]
  - ALTERED STATE OF CONSCIOUSNESS [None]
  - RENAL IMPAIRMENT [None]
  - ASTHENIA [None]
  - SPUTUM INCREASED [None]
  - PYREXIA [None]
  - SOMNOLENCE [None]
  - INCORRECT DOSE ADMINISTERED [None]
  - FALL [None]
  - ANAEMIA [None]
